FAERS Safety Report 6816169-5 (Version None)
Quarter: 2010Q3

REPORT INFORMATION
  Report Type: 
  Country: None (occurrence: None)
  Receive Date: 20100702
  Receipt Date: 20100702
  Transmission Date: 20110219
  Serious: No
  Sender: FDA-Public Use
  Company Number: None

PATIENT
  Sex: Female

DRUGS (2)
  1. CETIRIZINE HCL AND PSEUDOEPHEDRINE [Suspect]
     Dosage: 12 12 HOURS PO
     Route: 048
     Dates: start: 20100630, end: 20100701
  2. ZYRTEC-D 12 HOUR [Suspect]

REACTIONS (3)
  - INSOMNIA [None]
  - PRODUCT BLISTER PACKAGING ISSUE [None]
  - WRONG DRUG ADMINISTERED [None]
